FAERS Safety Report 6879229-9 (Version None)
Quarter: 2010Q3

REPORT INFORMATION
  Report Type: 
  Country: None (occurrence: None)
  Receive Date: 20100728
  Receipt Date: 20100712
  Transmission Date: 20110219
  Serious: Yes (Other)
  Sender: FDA-Public Use
  Company Number: PHHY2010CA42815

PATIENT
  Sex: Female

DRUGS (1)
  1. ACLASTA [Suspect]
     Indication: OSTEOPOROSIS
     Dosage: 5 MG
     Dates: start: 20090624

REACTIONS (5)
  - DIARRHOEA [None]
  - GASTROENTERITIS [None]
  - JOINT SPRAIN [None]
  - THERMAL BURN [None]
  - WEIGHT INCREASED [None]
